FAERS Safety Report 6176835-4 (Version None)
Quarter: 2009Q2

REPORT INFORMATION
  Report Type: 
  Country: None (occurrence: None)
  Receive Date: 20090501
  Receipt Date: 20090429
  Transmission Date: 20091009
  Serious: Yes (Life-Threatening, Hospitalization)
  Sender: FDA-Public Use
  Company Number: PHHY2009MT03933

PATIENT
  Sex: Male

DRUGS (3)
  1. CATAFAST [Suspect]
     Indication: PAIN
     Dosage: 50 MG, TID
     Route: 048
     Dates: start: 20090101, end: 20090101
  2. STEROIDS NOS [Concomitant]
     Indication: FACIAL PALSY
     Dosage: UNK
     Route: 048
  3. RADIOTHERAPY [Concomitant]

REACTIONS (3)
  - DRUG INTERACTION [None]
  - SHOCK HAEMORRHAGIC [None]
  - SURGERY [None]
